FAERS Safety Report 4377335-4 (Version None)
Quarter: 2004Q2

REPORT INFORMATION
  Report Type: 
  Country: None (occurrence: None)
  Receive Date: 20040609
  Receipt Date: 20040401
  Transmission Date: 20050107
  Serious: No
  Sender: FDA-Public Use
  Company Number: 2004207832US

PATIENT
  Age: 75 Year
  Sex: Female

DRUGS (6)
  1. BEXTRA [Suspect]
     Indication: ARTHRITIS
     Dosage: 10 MG, QD
     Dates: start: 20040401, end: 20040401
  2. ALEVE [Concomitant]
  3. VITAMIN E [Concomitant]
  4. MULTIVITAMINS (ERGOCALCIFEROL, RETINOL, PANTHENOL) [Concomitant]
  5. COMBIVENT [Concomitant]
  6. FLOVENT [Concomitant]

REACTIONS (3)
  - EUPHORIC MOOD [None]
  - HYPERHIDROSIS [None]
  - NAUSEA [None]
